FAERS Safety Report 24626009 (Version 1)
Quarter: 2024Q4

REPORT INFORMATION
  Report Type: Spontaneous
  Country: US (occurrence: None)
  Receive Date: 20241112
  Receipt Date: 20241112
  Transmission Date: 20250115
  Serious: No
  Sender: Public
  Company Number: None

PATIENT
  Sex: 0

DRUGS (1)
  1. GLYSET [Suspect]
     Active Substance: MIGLITOL
     Dosage: OTHER QUANTITY : 1 UNK;?FREQUENCY : TWICE A DAY;?

REACTIONS (2)
  - Blood testosterone increased [None]
  - Unevaluable event [None]
